FAERS Safety Report 23499912 (Version 2)
Quarter: 2024Q1

REPORT INFORMATION
  Report Type: Spontaneous
  Country: US (occurrence: US)
  Receive Date: 20240208
  Receipt Date: 20240212
  Transmission Date: 20240410
  Serious: No
  Sender: FDA-Public Use
  Company Number: US-ABBVIE-5625111

PATIENT
  Sex: Female

DRUGS (2)
  1. LATISSE [Suspect]
     Active Substance: BIMATOPROST
     Indication: Growth of eyelashes
     Dosage: FORM STRENGTH: 0.3 MILLIGRAM/MILLILITERS?0.03%
     Route: 061
     Dates: start: 20231126, end: 202312
  2. LATISSE [Suspect]
     Active Substance: BIMATOPROST
     Dosage: FORM STRENGTH: 0.3 MILLIGRAM/MILLILITERS?0.03%
     Route: 061

REACTIONS (6)
  - Swelling of eyelid [Unknown]
  - Eyelid rash [Unknown]
  - Drug hypersensitivity [Unknown]
  - Eyelids pruritus [Unknown]
  - Eyelid irritation [Unknown]
  - Erythema of eyelid [Unknown]
